FAERS Safety Report 12226937 (Version 1)
Quarter: 2016Q1

REPORT INFORMATION
  Report Type: Spontaneous
  Country: US (occurrence: US)
  Receive Date: 20160331
  Receipt Date: 20160331
  Transmission Date: 20160526
  Serious: No
  Sender: FDA-Public Use
  Company Number: US-TEVA-647587USA

PATIENT
  Sex: Female

DRUGS (1)
  1. COPAXONE [Suspect]
     Active Substance: GLATIRAMER ACETATE
     Dosage: UNKNOWN FORM STRENGTH
     Dates: start: 201602

REACTIONS (5)
  - Hyperhidrosis [Unknown]
  - Dizziness [Unknown]
  - Chills [Unknown]
  - Feeling hot [Unknown]
  - Malaise [Unknown]
